FAERS Safety Report 18147842 (Version 1)
Quarter: 2020Q3

REPORT INFORMATION
  Report Type: Spontaneous
  Country: US (occurrence: US)
  Receive Date: 20200813
  Receipt Date: 20200813
  Transmission Date: 20201103
  Serious: Yes (Hospitalization)
  Sender: FDA-Public Use
  Company Number: US-FRESENIUS MEDICAL CARE RENAL THERAPIES GROUP-FMC-2008-000885

PATIENT
  Sex: Male
  Weight: 81.5 kg

DRUGS (17)
  1. BUMEX [Concomitant]
     Active Substance: BUMETANIDE
  2. RENVELA [Concomitant]
     Active Substance: SEVELAMER CARBONATE
  3. CALCITRIOL. [Concomitant]
     Active Substance: CALCITRIOL
  4. LISINOPRIL. [Concomitant]
     Active Substance: LISINOPRIL
  5. TUMS [Concomitant]
     Active Substance: CALCIUM CARBONATE
  6. COUMADIN [Concomitant]
     Active Substance: WARFARIN SODIUM
  7. XANAX [Concomitant]
     Active Substance: ALPRAZOLAM
  8. DELFLEX WITH DEXTROSE 2.5% LOW MAGNESIUM LOW CALCIUM [Suspect]
     Active Substance: CALCIUM CHLORIDE\DEXTROSE\MAGNESIUM CHLORIDE\SODIUM CHLORIDE\SODIUM LACTATE
     Indication: END STAGE RENAL DISEASE
     Dosage: FILL VOLUME 1800 ML, 4 EXCHANGES, TOTAL TREATMENT VOLUME 7200 ML, NO LAST FILL, NO DAYTIME EXCHANGE,
     Route: 033
  9. DELFLEX WITH DEXTROSE 4.25% LOW MAGNESIUM LOW CALCIUM [Suspect]
     Active Substance: CALCIUM CHLORIDE\DEXTROSE\MAGNESIUM CHLORIDE\SODIUM CHLORIDE\SODIUM LACTATE
     Indication: END STAGE RENAL DISEASE
     Dosage: FILL VOLUME 1800 ML, 4 EXCHANGES, TOTAL TREATMENT VOLUME 7200 ML, NO LAST FILL, NO DAYTIME EXCHANGE,
     Route: 033
  10. ATORVASTATIN [Concomitant]
     Active Substance: ATORVASTATIN
  11. CARVEDILOL. [Concomitant]
     Active Substance: CARVEDILOL
  12. LEVEMIR [Concomitant]
     Active Substance: INSULIN DETEMIR
  13. SENNA [Concomitant]
     Active Substance: SENNA LEAF\SENNOSIDES\SENNOSIDES A AND B
  14. VITAMIN D3 [Concomitant]
     Active Substance: CHOLECALCIFEROL
  15. LASIX [Concomitant]
     Active Substance: FUROSEMIDE
  16. MELATONIN [Concomitant]
     Active Substance: MELATONIN
  17. DELFLEX WITH DEXTROSE 1.5% LOW MAGNESIUM LOW CALCIUM [Suspect]
     Active Substance: CALCIUM CHLORIDE\DEXTROSE\MAGNESIUM CHLORIDE\SODIUM CHLORIDE\SODIUM LACTATE
     Indication: END STAGE RENAL DISEASE
     Dosage: FILL VOLUME 1800 ML, 4 EXCHANGES, TOTAL TREATMENT VOLUME 7200 ML, NO LAST FILL, NO DAYTIME EXCHANGE,
     Route: 033

REACTIONS (1)
  - Oedema peripheral [Recovering/Resolving]
